FAERS Safety Report 5122558-X (Version None)
Quarter: 2006Q4

REPORT INFORMATION
  Report Type: 
  Country: None (occurrence: None)
  Receive Date: 20061009
  Receipt Date: 20060928
  Transmission Date: 20070319
  Serious: Yes (Other)
  Sender: FDA-Public Use
  Company Number: US-JNJFOC-20060802642

PATIENT
  Sex: Male
  Weight: 123.38 kg

DRUGS (18)
  1. REMICADE [Suspect]
     Route: 042
  2. REMICADE [Suspect]
     Route: 042
  3. REMICADE [Suspect]
     Route: 042
  4. REMICADE [Suspect]
     Indication: RHEUMATOID ARTHRITIS
     Route: 042
  5. NEXIUM [Concomitant]
     Indication: GASTROOESOPHAGEAL REFLUX DISEASE
  6. ALLOPURINOL [Concomitant]
     Indication: NEPHROLITHIASIS
  7. MAGNESIUM [Concomitant]
  8. FOLIC ACID [Concomitant]
     Indication: RHEUMATOID ARTHRITIS
  9. METHOTREXATE [Concomitant]
     Indication: RHEUMATOID ARTHRITIS
  10. VYTORIN [Concomitant]
     Indication: HYPERCHOLESTEROLAEMIA
  11. ASPIRIN [Concomitant]
     Indication: CARDIAC DISORDER
  12. ACTONEL [Concomitant]
     Indication: OSTEOPOROSIS
  13. METOPROLOL TARTRATE [Concomitant]
     Indication: HYPERTENSION
  14. LISINOPRIL [Concomitant]
     Indication: HYPERTENSION
  15. LYRICA [Concomitant]
     Indication: BACK PAIN
  16. LEVAQUIN [Concomitant]
     Indication: INFECTION
  17. HYDERCON [Concomitant]
     Indication: PAIN
  18. MORPHINE SULFATE [Concomitant]
     Indication: PAIN

REACTIONS (7)
  - CHEST PAIN [None]
  - DIABETES MELLITUS [None]
  - EAR INFECTION [None]
  - PHARYNGITIS [None]
  - PHARYNGITIS STREPTOCOCCAL [None]
  - THROAT TIGHTNESS [None]
  - UPPER RESPIRATORY TRACT INFECTION [None]
